FAERS Safety Report 24086261 (Version 3)
Quarter: 2025Q2

REPORT INFORMATION
  Report Type: Report from Study
  Country: CA (occurrence: CA)
  Receive Date: 20240712
  Receipt Date: 20250605
  Transmission Date: 20250717
  Serious: Yes (Death, Hospitalization)
  Sender: BAUSCH AND LOMB
  Company Number: CA-BAUSCH-BL-2024-010528

PATIENT
  Age: 64 Year
  Sex: Male

DRUGS (2)
  1. SILIQ [Suspect]
     Active Substance: BRODALUMAB
     Indication: Psoriasis
     Dosage: 210 MG / 1.5 ML, WEEKLY
     Route: 058
     Dates: start: 20230613, end: 202306
  2. SILIQ [Suspect]
     Active Substance: BRODALUMAB
     Dosage: 210 MG / 1.5 ML, Q 2 WEEKS
     Route: 058
     Dates: start: 202406

REACTIONS (3)
  - Death [Fatal]
  - Hospitalisation [Unknown]
  - Intentional dose omission [Unknown]

NARRATIVE: CASE EVENT DATE: 20240101
